FAERS Safety Report 25915902 (Version 3)
Quarter: 2025Q4

REPORT INFORMATION
  Report Type: Spontaneous
  Country: US (occurrence: US)
  Receive Date: 20251013
  Receipt Date: 20251111
  Transmission Date: 20260117
  Serious: Yes (Other)
  Sender: APELLIS PHARMACEUTICALS
  Company Number: US-APELLIS-2025-APL-0001926

PATIENT

DRUGS (15)
  1. SYFOVRE [Suspect]
     Active Substance: PEGCETACOPLAN
     Indication: Dry age-related macular degeneration
     Dosage: RIGHT EYE, 15 MG, INTRAVITREAL, EVERY 2 MONTHS
     Route: 031
  2. ALAWAY [Concomitant]
     Active Substance: KETOTIFEN FUMARATE
     Indication: Product used for unknown indication
     Dosage: 1GTT PRN OU
  3. LATANOPROST [Concomitant]
     Active Substance: LATANOPROST
     Indication: Glaucoma
     Dosage: 1GTT EVERY DAY, OU
     Route: 047
  4. MINERALS\VITAMINS [Concomitant]
     Active Substance: MINERALS\VITAMINS
     Indication: Product used for unknown indication
     Dosage: 1TABLET BID BY MOUTH
     Route: 048
  5. SINGULAIR [Concomitant]
     Active Substance: MONTELUKAST SODIUM
     Indication: Product used for unknown indication
     Dosage: 10 MG ORAL TABLET 1 QDAY
     Route: 048
  6. ALLOPURINOL [Concomitant]
     Active Substance: ALLOPURINOL
     Indication: Product used for unknown indication
     Dosage: 100MG ORAL TABLET 1 QDAY
     Route: 048
  7. LIPITOR [Concomitant]
     Active Substance: ATORVASTATIN CALCIUM
     Indication: Product used for unknown indication
     Dosage: 10.000MG QD
  8. MAGNESIUM [Concomitant]
     Active Substance: MAGNESIUM
     Indication: Product used for unknown indication
     Dosage: QD
  9. VITAMIN B12 [Concomitant]
     Active Substance: CYANOCOBALAMIN
     Indication: Product used for unknown indication
     Dosage: QD
  10. VITAMIN D3 [Concomitant]
     Active Substance: CHOLECALCIFEROL
     Indication: Product used for unknown indication
     Dosage: 1000.000U
  11. AMLODIPINE [Concomitant]
     Active Substance: AMLODIPINE BESYLATE
     Indication: Product used for unknown indication
     Dosage: 5.000MG QD
  12. PROAIR HFA [Concomitant]
     Active Substance: ALBUTEROL SULFATE
     Indication: Product used for unknown indication
     Route: 055
  13. ELIQUIS [Concomitant]
     Active Substance: APIXABAN
     Indication: Product used for unknown indication
     Dosage: BID
  14. AMIODARONE HYDROCHLORIDE [Concomitant]
     Active Substance: AMIODARONE HYDROCHLORIDE
     Indication: Product used for unknown indication
     Dosage: 100.000MG QD
     Route: 048
  15. TRELEGY ELLIPTA [Concomitant]
     Active Substance: FLUTICASONE FUROATE\UMECLIDINIUM BROMIDE\VILANTEROL TRIFENATATE
     Indication: Product used for unknown indication

REACTIONS (26)
  - Iritis [Recovering/Resolving]
  - Choroidal neovascularisation [Not Recovered/Not Resolved]
  - Central serous chorioretinopathy [Recovered/Resolved]
  - Glaucoma [Unknown]
  - Glaucoma [Unknown]
  - Vitreous detachment [Unknown]
  - Choroidal neovascularisation [Unknown]
  - Neovascular age-related macular degeneration [Unknown]
  - Retinal detachment [Unknown]
  - Macular oedema [Recovering/Resolving]
  - Subretinal fibrosis [Unknown]
  - Subretinal fibrosis [Unknown]
  - Dry age-related macular degeneration [Unknown]
  - Vitreous haze [Recovering/Resolving]
  - Disease progression [Unknown]
  - Impaired driving ability [Unknown]
  - Vitreous floaters [Unknown]
  - Vitreous floaters [Unknown]
  - Metamorphopsia [Unknown]
  - Metamorphopsia [Unknown]
  - Vision blurred [Unknown]
  - Vision blurred [Unknown]
  - Dyspnoea [Unknown]
  - Nasopharyngitis [Unknown]
  - Spinal stenosis [Unknown]
  - Dyspepsia [Unknown]

NARRATIVE: CASE EVENT DATE: 20250915
